FAERS Safety Report 7599241-4 (Version None)
Quarter: 2011Q3

REPORT INFORMATION
  Report Type: 
  Country: None (occurrence: None)
  Receive Date: 20110711
  Receipt Date: 20110303
  Transmission Date: 20111222
  Serious: No
  Sender: FDA-Public Use
  Company Number: US-BAYER-2011-022315

PATIENT
  Sex: Male
  Weight: 142 kg

DRUGS (4)
  1. ALEVE (CAPLET) [Suspect]
     Indication: NEURALGIA
     Dosage: 2 DF, PRN
     Route: 048
     Dates: start: 20060101
  2. CHOLESTEROL- AND TRIGLYCERIDE REDUCERS [Concomitant]
  3. MEDICATION FOR TREATING NEUROPATHY [Concomitant]
  4. ALEVE (CAPLET) [Suspect]
     Dosage: 2 DF, PRN
     Route: 048

REACTIONS (1)
  - BLOOD SODIUM INCREASED [None]
